FAERS Safety Report 4369636-0 (Version None)
Quarter: 2004Q2

REPORT INFORMATION
  Report Type: 
  Country: None (occurrence: None)
  Receive Date: 20040527
  Receipt Date: 20040507
  Transmission Date: 20050107
  Serious: Yes (Hospitalization, Other)
  Sender: FDA-Public Use
  Company Number: US_020180405

PATIENT
  Age: 61 Year
  Sex: Female
  Weight: 91 kg

DRUGS (12)
  1. HUMULIN N [Suspect]
     Indication: DIABETES MELLITUS
     Dosage: 28 U/1 IN THE MORNING
     Dates: start: 19881215
  2. HUMULIN R [Suspect]
     Indication: DIABETES MELLITUS
     Dosage: 8 U/1 IN THE MORNING
     Dates: start: 19881215
  3. VALDECOXIB [Concomitant]
  4. METOPROLOL TARTRATE [Concomitant]
  5. LISINOPRIL [Concomitant]
  6. LEVOTHYROXINE SODIUM [Concomitant]
  7. NIFEDIPINE ^BAYER^ (NIFEDIPINE) [Concomitant]
  8. POTASSIUM CHLORIDE [Concomitant]
  9. MULTI-VITAMIN [Concomitant]
  10. CALCIUM [Concomitant]
  11. CARTEOLOL HCL [Concomitant]
  12. GLAUCOMA [Concomitant]

REACTIONS (19)
  - ANGIOPLASTY [None]
  - ARTHRITIS [None]
  - BLOOD GLUCOSE INCREASED [None]
  - BODY HEIGHT DECREASED [None]
  - CARDIAC DISORDER [None]
  - CATARACT OPERATION [None]
  - CONDITION AGGRAVATED [None]
  - EYE DISCHARGE [None]
  - EYE INFECTION [None]
  - EYE REDNESS [None]
  - HYPERSENSITIVITY [None]
  - INFECTION [None]
  - INFLUENZA [None]
  - JOINT SPRAIN [None]
  - MEDICAL DEVICE COMPLICATION [None]
  - NEUROPATHY [None]
  - PAIN IN EXTREMITY [None]
  - PHARMACEUTICAL PRODUCT COMPLAINT [None]
  - TENDON INJURY [None]
